FAERS Safety Report 8317060-8 (Version None)
Quarter: 2012Q2

REPORT INFORMATION
  Report Type: 
  Country: None (occurrence: None)
  Receive Date: 20120425
  Receipt Date: 20120411
  Transmission Date: 20120825
  Serious: Yes (Disabling, Other)
  Sender: FDA-Public Use
  Company Number: 2012P1011580

PATIENT
  Age: 84 Year
  Sex: Male
  Weight: 77.1115 kg

DRUGS (29)
  1. ACIDOPHILUS PROBIOTIC [Concomitant]
  2. ZINC SULFATE [Concomitant]
  3. SIMVASTATIN [Concomitant]
  4. VITAMIN C [Concomitant]
  5. VITAMIN E [Concomitant]
  6. SAW PALMETTO [Concomitant]
  7. CHROMIUM CHLORIDE [Concomitant]
  8. FISH OIL [Concomitant]
  9. MAGNESIUM [Concomitant]
  10. LUTEIN [Concomitant]
  11. METHYLPREDNISOLONE 4MG TAB [Suspect]
     Indication: TYMPANIC MEMBRANE DISORDER
     Dosage: 24 MG;X1, 8 MG;AM, 8 MG;NOON, 4 MG;HS, 4 MG;QID
     Route: 048
     Dates: start: 20120328, end: 20120328
  12. METHYLPREDNISOLONE 4MG TAB [Suspect]
     Indication: INFLAMMATION
     Dosage: 24 MG;X1, 8 MG;AM, 8 MG;NOON, 4 MG;HS, 4 MG;QID
     Route: 048
     Dates: start: 20120328, end: 20120328
  13. METHYLPREDNISOLONE 4MG TAB [Suspect]
     Indication: TYMPANIC MEMBRANE DISORDER
     Dosage: 24 MG;X1, 8 MG;AM, 8 MG;NOON, 4 MG;HS, 4 MG;QID
     Route: 048
     Dates: start: 20120329, end: 20120329
  14. METHYLPREDNISOLONE 4MG TAB [Suspect]
     Indication: INFLAMMATION
     Dosage: 24 MG;X1, 8 MG;AM, 8 MG;NOON, 4 MG;HS, 4 MG;QID
     Route: 048
     Dates: start: 20120329, end: 20120329
  15. METHYLPREDNISOLONE 4MG TAB [Suspect]
     Indication: TYMPANIC MEMBRANE DISORDER
     Dosage: 24 MG;X1, 8 MG;AM, 8 MG;NOON, 4 MG;HS, 4 MG;QID
     Route: 048
     Dates: start: 20120330
  16. METHYLPREDNISOLONE 4MG TAB [Suspect]
     Indication: INFLAMMATION
     Dosage: 24 MG;X1, 8 MG;AM, 8 MG;NOON, 4 MG;HS, 4 MG;QID
     Route: 048
     Dates: start: 20120330
  17. METHYLPREDNISOLONE 4MG TAB [Suspect]
     Indication: TYMPANIC MEMBRANE DISORDER
     Dosage: 24 MG;X1, 8 MG;AM, 8 MG;NOON, 4 MG;HS, 4 MG;QID
     Route: 048
     Dates: start: 20120329, end: 20120329
  18. METHYLPREDNISOLONE 4MG TAB [Suspect]
     Indication: INFLAMMATION
     Dosage: 24 MG;X1, 8 MG;AM, 8 MG;NOON, 4 MG;HS, 4 MG;QID
     Route: 048
     Dates: start: 20120329, end: 20120329
  19. VITAMIN D [Concomitant]
  20. FINASTERIDE [Concomitant]
  21. ASPIRIN [Concomitant]
  22. BIOTIN [Concomitant]
  23. LISINOPRIL [Concomitant]
  24. HUMALOG [Concomitant]
  25. CO-Q10 ENZYME [Concomitant]
  26. CALCIUM [Concomitant]
  27. CHONDROITIN SULFATE [Concomitant]
  28. MULTI-VITAMIN [Concomitant]
  29. GARLIC [Concomitant]

REACTIONS (21)
  - RECTAL HAEMORRHAGE [None]
  - ASTHENIA [None]
  - VISUAL IMPAIRMENT [None]
  - DISORIENTATION [None]
  - FALL [None]
  - DRUG INEFFECTIVE [None]
  - INCORRECT DOSE ADMINISTERED [None]
  - HAEMATOCHEZIA [None]
  - NAUSEA [None]
  - FEELING ABNORMAL [None]
  - DIARRHOEA [None]
  - CHEST PAIN [None]
  - CONTUSION [None]
  - DEPRESSION [None]
  - HAEMOGLOBIN DECREASED [None]
  - ARTHRALGIA [None]
  - MOOD ALTERED [None]
  - RESTLESSNESS [None]
  - BLOOD GLUCOSE DECREASED [None]
  - BACK PAIN [None]
  - FEELINGS OF WORTHLESSNESS [None]
